FAERS Safety Report 20704479 (Version 12)
Quarter: 2023Q1

REPORT INFORMATION
  Report Type: Report from Study
  Country: KR (occurrence: KR)
  Receive Date: 20220413
  Receipt Date: 20230329
  Transmission Date: 20230417
  Serious: Yes (Hospitalization, Other)
  Sender: FDA-Public Use
  Company Number: KR-JNJFOC-20220350746

PATIENT
  Age: 58 Year
  Sex: Female

DRUGS (4)
  1. TRACLEER [Suspect]
     Active Substance: BOSENTAN
     Indication: Pulmonary arterial hypertension
     Route: 048
     Dates: end: 202301
  2. MACITENTAN [Suspect]
     Active Substance: MACITENTAN
     Indication: Pulmonary arterial hypertension
     Route: 048
     Dates: start: 202301
  3. REMODULIN [Suspect]
     Active Substance: TREPROSTINIL
     Indication: Product used for unknown indication
     Dosage: STARTED IN /JAN/2023
     Route: 065
  4. WARFARIN [Concomitant]
     Active Substance: WARFARIN

REACTIONS (22)
  - Oedema due to cardiac disease [Unknown]
  - Thrombosis [Unknown]
  - Pulmonary arterial hypertension [Unknown]
  - Blood test abnormal [Unknown]
  - Malnutrition [Unknown]
  - COVID-19 [Recovered/Resolved]
  - Diarrhoea [Recovered/Resolved]
  - Dyspepsia [Not Recovered/Not Resolved]
  - Depression [Unknown]
  - Gastrointestinal disorder [Unknown]
  - Productive cough [Recovered/Resolved]
  - Insomnia [Recovered/Resolved]
  - Dyspnoea [Recovering/Resolving]
  - Cardiac disorder [Unknown]
  - Decreased appetite [Recovering/Resolving]
  - Renal disorder [Not Recovered/Not Resolved]
  - Pain [Recovering/Resolving]
  - Hypophagia [Unknown]
  - Asthenia [Unknown]
  - Injection site pain [Unknown]
  - Injection site erythema [Unknown]
  - Injection site swelling [Unknown]

NARRATIVE: CASE EVENT DATE: 20230315
